FAERS Safety Report 11154819 (Version 1)
Quarter: 2015Q2

REPORT INFORMATION
  Report Type: Spontaneous
  Country: US (occurrence: None)
  Receive Date: 20150529
  Receipt Date: 20150529
  Transmission Date: 20150821
  Serious: Yes (Disabling)
  Sender: FDA-Public Use
  Company Number: DEP_02674_2015

PATIENT
  Sex: Female
  Weight: 70.31 kg

DRUGS (8)
  1. FENTANYL. [Concomitant]
     Active Substance: FENTANYL
  2. GRALISE [Suspect]
     Active Substance: GABAPENTIN
     Indication: OFF LABEL USE
     Dosage: (300 MG QD, STARTER PACK, TITRATED UP TO 1200MG, ONCE DAILY, WITH EVENING ORAL)
     Route: 048
     Dates: start: 20150330, end: 201504
  3. ATENOLOL. [Concomitant]
     Active Substance: ATENOLOL
  4. PREDNISONE. [Concomitant]
     Active Substance: PREDNISONE
  5. TRAZODONE [Concomitant]
     Active Substance: TRAZODONE HYDROCHLORIDE
  6. HYDROCODONE [Concomitant]
     Active Substance: HYDROCODONE
  7. GRALISE [Suspect]
     Active Substance: GABAPENTIN
     Indication: NEURALGIA
     Dosage: (300 MG QD, STARTER PACK, TITRATED UP TO 1200MG, ONCE DAILY, WITH EVENING ORAL)
     Route: 048
     Dates: start: 20150330, end: 201504
  8. LETROZOLE. [Concomitant]
     Active Substance: LETROZOLE

REACTIONS (9)
  - Abasia [None]
  - Malaise [None]
  - Hypersomnia [None]
  - Nausea [None]
  - Peripheral swelling [None]
  - Disorientation [None]
  - Vertigo [None]
  - Dizziness [None]
  - Vomiting [None]

NARRATIVE: CASE EVENT DATE: 2015
